FAERS Safety Report 6217219-X (Version None)
Quarter: 2009Q2

REPORT INFORMATION
  Report Type: 
  Country: None (occurrence: None)
  Receive Date: 20090608
  Receipt Date: 20090526
  Transmission Date: 20091009
  Serious: Yes (Death, Hospitalization)
  Sender: FDA-Public Use
  Company Number: AU-PFIZER INC-2009218518

PATIENT
  Age: 53 Year

DRUGS (3)
  1. CHAMPIX [Suspect]
     Dosage: UNK
     Dates: start: 20081215, end: 20090304
  2. ANTIHYPERTENSIVES [Concomitant]
  3. ANTI-DIABETICS [Concomitant]
     Indication: DIABETES MELLITUS

REACTIONS (3)
  - DYSPNOEA [None]
  - FLUID RETENTION [None]
  - RENAL FAILURE [None]
